FAERS Safety Report 6551191-8 (Version None)
Quarter: 2010Q1

REPORT INFORMATION
  Report Type: 
  Country: None (occurrence: None)
  Receive Date: 20100121
  Receipt Date: 20100107
  Transmission Date: 20100710
  Serious: Yes (Other)
  Sender: FDA-Public Use
  Company Number: 2009AL007605

PATIENT
  Age: 76 Year
  Sex: Male

DRUGS (8)
  1. SERTRALINE HYDROCHLORIDE [Suspect]
     Indication: DEPRESSED MOOD
     Dosage: 100 MG;QD;PO
     Route: 048
  2. MIRAPEX [Concomitant]
  3. CIMETIDINE [Concomitant]
  4. MODAPAR [Concomitant]
  5. INFUMORPH [Concomitant]
  6. SPIRONOLACTONE [Concomitant]
  7. FUROSEMIDE [Concomitant]
  8. QUININE SULFATE [Concomitant]

REACTIONS (2)
  - VISUAL IMPAIRMENT [None]
  - VITREOUS FLOATERS [None]
